FAERS Safety Report 8911261 (Version 1)
Quarter: 2012Q4

REPORT INFORMATION
  Report Type: 
  Country: US (occurrence: US)
  Receive Date: 20121116
  Receipt Date: 20121116
  Transmission Date: 20130627
  Serious: No
  Sender: FDA-Public Use
  Company Number: US-GLAXOSMITHKLINE-A0993942A

PATIENT
  Age: 77 Year
  Sex: Female
  Weight: 81 kg

DRUGS (7)
  1. VOTRIENT [Suspect]
     Indication: PRODUCT USED FOR UNKNOWN INDICATION
     Dosage: 200MG Twice per day
     Route: 048
  2. LASIX [Concomitant]
     Route: 048
  3. ENALAPRIL [Concomitant]
     Route: 048
  4. UNSPECIFIED MEDICATION [Concomitant]
     Route: 048
  5. BABY ASPIRIN [Concomitant]
     Route: 048
  6. ADVIL [Concomitant]
     Route: 048
  7. TYLENOL [Concomitant]
     Route: 048

REACTIONS (1)
  - Fatigue [Unknown]
